FAERS Safety Report 7941851-6 (Version None)
Quarter: 2011Q4

REPORT INFORMATION
  Report Type: 
  Country: None (occurrence: None)
  Receive Date: 20111122
  Receipt Date: 20111122
  Transmission Date: 20120403
  Serious: Yes (Life-Threatening, Hospitalization, Disabling)
  Sender: FDA-Public Use
  Company Number: None

PATIENT
  Age: 55 Year
  Sex: Female

DRUGS (2)
  1. PHENOBARBITAL TAB [Concomitant]
  2. CARBAMAZEPINE [Suspect]
     Indication: CONVULSION
     Dosage: TKE 3 CAPSULES IN THE MORNING AND 2 CAPSULES IN THE EVENING

REACTIONS (2)
  - CONVULSION [None]
  - ACCIDENT [None]
